FAERS Safety Report 9006085 (Version 1)
Quarter: 2013Q1

REPORT INFORMATION
  Report Type: Spontaneous
  Country: US (occurrence: US)
  Receive Date: 20130109
  Receipt Date: 20130109
  Transmission Date: 20140127
  Serious: Yes (Other)
  Sender: FDA-Public Use
  Company Number: PHHY2013US001608

PATIENT
  Age: 80 Year
  Sex: Male

DRUGS (3)
  1. ASCRIPTIN BUFFERED MAX STRENGTH CAPLETS [Suspect]
     Dosage: 2 DF, QD
     Route: 048
  2. BUFFERIN [Suspect]
     Indication: HEADACHE
     Route: 048
  3. ACETYLSALICYLIC ACID [Suspect]
     Indication: HEADACHE
     Route: 048

REACTIONS (5)
  - Colon cancer [Recovered/Resolved]
  - Intestinal mass [Recovered/Resolved]
  - Abdominal pain upper [Recovered/Resolved]
  - Irritable bowel syndrome [Recovered/Resolved]
  - Incorrect drug administration duration [Unknown]
